FAERS Safety Report 18355000 (Version 1)
Quarter: 2020Q4

REPORT INFORMATION
  Report Type: Spontaneous
  Country: US (occurrence: US)
  Receive Date: 20201007
  Receipt Date: 20201007
  Transmission Date: 20210114
  Serious: Yes (Disabling)
  Sender: FDA-Public Use
  Company Number: None

PATIENT
  Age: 39 Year
  Sex: Female
  Weight: 72 kg

DRUGS (3)
  1. TRAZODONE [Concomitant]
     Active Substance: TRAZODONE HYDROCHLORIDE
  2. BUPROPION XL [Suspect]
     Active Substance: BUPROPION
     Indication: DEPRESSION
     Dosage: ?          QUANTITY:2 TABLET(S);?
     Route: 048
  3. BUPROPION. [Concomitant]
     Active Substance: BUPROPION

REACTIONS (5)
  - Headache [None]
  - Tinnitus [None]
  - Dizziness [None]
  - Disturbance in attention [None]
  - Nausea [None]

NARRATIVE: CASE EVENT DATE: 20200930
